FAERS Safety Report 4612982-3 (Version None)
Quarter: 2005Q1

REPORT INFORMATION
  Report Type: 
  Country: None (occurrence: None)
  Receive Date: 20050318
  Receipt Date: 20050307
  Transmission Date: 20050727
  Serious: Yes (Hospitalization)
  Sender: FDA-Public Use
  Company Number: GB-JNJFOC-20041204489

PATIENT
  Sex: Male

DRUGS (1)
  1. INFLIXIMAB [Suspect]
     Indication: METASTATIC RENAL CELL CARCINOMA
     Route: 042

REACTIONS (3)
  - BILE DUCT CANCER [None]
  - HEPATIC ENZYME INCREASED [None]
  - JAUNDICE [None]
